FAERS Safety Report 19273929 (Version 1)
Quarter: 2021Q2

REPORT INFORMATION
  Report Type: Report from Study
  Country: IT (occurrence: IT)
  Receive Date: 20210519
  Receipt Date: 20210519
  Transmission Date: 20210717
  Serious: Yes (Death, Other)
  Sender: FDA-Public Use
  Company Number: IT-PFIZER INC-2021549574

PATIENT

DRUGS (3)
  1. DOXORUBICIN HCL [Suspect]
     Active Substance: DOXORUBICIN HYDROCHLORIDE
     Indication: PERIPHERAL PRIMITIVE NEUROECTODERMAL BONE TUMOUR
     Dosage: 40 MG/M2, CYCLIC (OVER 4 HOURS X2 DAYS)
  2. VINCRISTINE SULFATE. [Suspect]
     Active Substance: VINCRISTINE SULFATE
     Indication: PERIPHERAL PRIMITIVE NEUROECTODERMAL BONE TUMOUR
     Dosage: 1.5 MG/M2, CYCLIC,  (PUSH, TOP DOSE, 2 MG)
  3. CYCLOPHOSPHAMIDE. [Suspect]
     Active Substance: CYCLOPHOSPHAMIDE
     Indication: PERIPHERAL PRIMITIVE NEUROECTODERMAL BONE TUMOUR
     Dosage: 1200 MG/M2, CYCLIC, OVER 30 MINUTES

REACTIONS (2)
  - Myelosuppression [Fatal]
  - Sepsis [Fatal]
